FAERS Safety Report 18721816 (Version 2)
Quarter: 2021Q1

REPORT INFORMATION
  Report Type: Other
  Country: US (occurrence: US)
  Receive Date: 20210111
  Receipt Date: 20210118
  Transmission Date: 20210419
  Serious: Yes (Death)
  Sender: FDA-Public Use
  Company Number: US-ROCHE-2690636

PATIENT
  Sex: Female

DRUGS (19)
  1. XELODA [Suspect]
     Active Substance: CAPECITABINE
     Indication: NEOPLASM MALIGNANT
     Dosage: TAKE 3 TABLET(S) TWICE A DAY FOR 2 WEEKS, AND THEN DO NOT TAKE THEM FOR 1 WEEK?REPEAT
     Route: 048
  2. LASIX [Concomitant]
     Active Substance: FUROSEMIDE
     Route: 048
  3. PREDNISONE. [Concomitant]
     Active Substance: PREDNISONE
  4. ELIQUIS [Concomitant]
     Active Substance: APIXABAN
     Dosage: TAKE 2 TABLETS FOR 7 DAYS THEN TAKE 1 TAB
  5. ASPIRIN. [Concomitant]
     Active Substance: ASPIRIN
     Dosage: 81 MG DELAYED RELEASE TAB
  6. LORAZEPAM. [Concomitant]
     Active Substance: LORAZEPAM
     Dosage: EVERY 6 HOURS AS NEEDED FOR ANXIETY
  7. GABAPENTIN. [Concomitant]
     Active Substance: GABAPENTIN
  8. PRILOCAINE [Concomitant]
     Active Substance: PRILOCAINE
  9. PROCHLORPERAZINE. [Concomitant]
     Active Substance: PROCHLORPERAZINE
     Dosage: EVERY 6 HOURS AS NEEDED (NAUSEA OR VOMITING)
     Route: 048
  10. PROPRANOLOL [Concomitant]
     Active Substance: PROPRANOLOL HYDROCHLORIDE
     Route: 048
  11. ATORVASTATIN [Concomitant]
     Active Substance: ATORVASTATIN
  12. XELODA [Suspect]
     Active Substance: CAPECITABINE
     Dosage: TAKE 3 TABS TWICE DAILY FOR 14 DAYS FOLLOWED BY 7 DAYS OFF . REPEAT
     Route: 048
  13. XELODA [Suspect]
     Active Substance: CAPECITABINE
     Dosage: THERAPY STATUS ONGOING: NO
     Route: 048
  14. HYDROCHLOROTHIAZIDE. [Concomitant]
     Active Substance: HYDROCHLOROTHIAZIDE
  15. LIDOCAINE. [Concomitant]
     Active Substance: LIDOCAINE
  16. VITAMIN D3 [Concomitant]
     Active Substance: CHOLECALCIFEROL
     Dosage: 2000 UNIT CAPSULE
  17. POTASSIUM CHLORIDE. [Concomitant]
     Active Substance: POTASSIUM CHLORIDE
     Dosage: 20 MEQ DISPERSABLE ER TAB
     Route: 048
  18. XARELTO [Concomitant]
     Active Substance: RIVAROXABAN
     Route: 048
  19. CALCIUM [Concomitant]
     Active Substance: CALCIUM
     Route: 048

REACTIONS (2)
  - Liver disorder [Unknown]
  - Death [Fatal]
